FAERS Safety Report 19198000 (Version 1)
Quarter: 2021Q2

REPORT INFORMATION
  Report Type: Spontaneous
  Country: HR (occurrence: HR)
  Receive Date: 20210430
  Receipt Date: 20210430
  Transmission Date: 20210717
  Serious: Yes (Other)
  Sender: FDA-Public Use
  Company Number: HR-TEVA-2021-HR-1905884

PATIENT
  Age: 50 Year
  Sex: Male

DRUGS (2)
  1. LEXILIUM [Suspect]
     Active Substance: BROMAZEPAM
     Dosage: 180 MG
     Route: 048
     Dates: start: 20210316, end: 20210316
  2. OLANZAPIN [Suspect]
     Active Substance: OLANZAPINE
     Dosage: 420 MG
     Route: 048
     Dates: start: 20210316, end: 20210316

REACTIONS (4)
  - Loss of consciousness [Unknown]
  - Suicide attempt [Unknown]
  - Intentional overdose [Unknown]
  - Wheezing [Unknown]

NARRATIVE: CASE EVENT DATE: 20210316
